FAERS Safety Report 7499574-6 (Version None)
Quarter: 2011Q2

REPORT INFORMATION
  Report Type: 
  Country: None (occurrence: None)
  Receive Date: 20110524
  Receipt Date: 20110518
  Transmission Date: 20111010
  Serious: Yes (Life-Threatening, Hospitalization)
  Sender: FDA-Public Use
  Company Number: PHHO2003GB13602

PATIENT
  Sex: Female
  Weight: 68.9 kg

DRUGS (4)
  1. PREDNISOLONE [Concomitant]
     Indication: MYOSITIS
     Dosage: 30 MG / DAY
     Route: 048
     Dates: start: 19980701
  2. CYCLOSPORINE [Suspect]
     Indication: MYOSITIS
  3. RAMIPRIL [Concomitant]
  4. METHOTREXATE [Suspect]
     Indication: MYOSITIS
     Dosage: UNK
     Route: 048
     Dates: start: 20030630, end: 20031003

REACTIONS (3)
  - RESPIRATORY DISTRESS [None]
  - DYSPNOEA [None]
  - ASTHENIA [None]
